FAERS Safety Report 8286840-X (Version None)
Quarter: 2012Q2

REPORT INFORMATION
  Report Type: 
  Country: None (occurrence: None)
  Receive Date: 20120416
  Receipt Date: 20120402
  Transmission Date: 20120825
  Serious: Yes (Hospitalization)
  Sender: FDA-Public Use
  Company Number: FR-ELI_LILLY_AND_COMPANY-FR201204004182

PATIENT
  Age: 47 Year
  Sex: Female

DRUGS (3)
  1. CYMBALTA [Suspect]
     Dosage: 60 MG, QD
     Route: 048
  2. CYMBALTA [Suspect]
     Dosage: 30 MG, QD
     Route: 048
  3. CYMBALTA [Suspect]
     Indication: DEPRESSION
     Dosage: 30 MG, QD
     Route: 048

REACTIONS (3)
  - CHEST PAIN [None]
  - HYPERHIDROSIS [None]
  - HYPERTENSION [None]
